FAERS Safety Report 19353524 (Version 2)
Quarter: 2022Q1

REPORT INFORMATION
  Report Type: Report from Study
  Country: JP (occurrence: JP)
  Receive Date: 20210601
  Receipt Date: 20220215
  Transmission Date: 20220423
  Serious: Yes (Death)
  Sender: FDA-Public Use
  Company Number: JP-UCBJ-CD202104896UCBPHAPROD

PATIENT
  Sex: Male

DRUGS (7)
  1. LACOSAMIDE [Suspect]
     Active Substance: LACOSAMIDE
     Indication: Focal dyscognitive seizures
     Dosage: 50 MILLIGRAM, 2X/DAY (BID)
     Route: 048
     Dates: start: 20181015, end: 20181113
  2. LACOSAMIDE [Suspect]
     Active Substance: LACOSAMIDE
     Dosage: 100 MILLIGRAM, 2X/DAY (BID)
     Route: 048
     Dates: start: 20181114, end: 20201120
  3. LEVETIRACETAM [Concomitant]
     Active Substance: LEVETIRACETAM
     Indication: Focal dyscognitive seizures
     Dosage: 3000 MILLIGRAM, DAILY
     Route: 048
     Dates: end: 20201120
  4. PHENYTOIN [Concomitant]
     Active Substance: PHENYTOIN
     Indication: Focal dyscognitive seizures
     Dosage: 200 MILLIGRAM, ONCE DAILY (QD)
     Route: 048
     Dates: end: 20201120
  5. PHENOBARBITAL [Concomitant]
     Active Substance: PHENOBARBITAL
     Indication: Focal dyscognitive seizures
     Dosage: 120 MILLIGRAM, ONCE DAILY (QD)
     Route: 048
     Dates: end: 20201120
  6. ZONISAMIDE [Concomitant]
     Active Substance: ZONISAMIDE
     Indication: Focal dyscognitive seizures
     Dosage: 400 MILLIGRAM, ONCE DAILY (QD)
     Route: 048
     Dates: end: 20201120
  7. FYCOMPA [Concomitant]
     Active Substance: PERAMPANEL
     Indication: Focal dyscognitive seizures
     Dosage: 8 MILLIGRAM, ONCE DAILY (QD)
     Route: 048
     Dates: end: 20201120

REACTIONS (1)
  - Pneumonia [Fatal]
